FAERS Safety Report 4355881-7 (Version None)
Quarter: 2004Q2

REPORT INFORMATION
  Report Type: 
  Country: None (occurrence: None)
  Receive Date: 20040507
  Receipt Date: 20040507
  Transmission Date: 20050107
  Serious: Yes (Life-Threatening)
  Sender: FDA-Public Use
  Company Number: None

PATIENT
  Age: 55 Year
  Sex: Male

DRUGS (1)
  1. POTASSIUM PHOSPHATES [Suspect]
     Indication: ELECTROLYTE SUBSTITUTION THERAPY
     Dosage: 30 MMOL OVER 1 HOU IV
     Route: 042
     Dates: start: 20040331, end: 20040331

REACTIONS (4)
  - BLOOD PHOSPHORUS INCREASED [None]
  - BLOOD POTASSIUM INCREASED [None]
  - BLOOD PRESSURE SYSTOLIC DECREASED [None]
  - HEART RATE DECREASED [None]
